FAERS Safety Report 4721701-1 (Version None)
Quarter: 2005Q3

REPORT INFORMATION
  Report Type: 
  Country: None (occurrence: None)
  Receive Date: 20050721
  Receipt Date: 20050303
  Transmission Date: 20060218
  Serious: No
  Sender: FDA-Public Use
  Company Number: US-BRISTOL-MYERS SQUIBB COMPANY-12884615

PATIENT
  Age: 78 Year
  Sex: Male
  Weight: 68 kg

DRUGS (4)
  1. COUMADIN [Suspect]
     Indication: ATRIAL FIBRILLATION
     Dosage: DURATION = 2-3 MONTHS
  2. MULTI-VITAMIN [Concomitant]
  3. TOPROL-XL [Concomitant]
  4. LIPITOR [Concomitant]

REACTIONS (1)
  - ARTHRALGIA [None]
